FAERS Safety Report 6237108-4 (Version None)
Quarter: 2009Q2

REPORT INFORMATION
  Report Type: 
  Country: None (occurrence: None)
  Receive Date: 20090619
  Receipt Date: 20090413
  Transmission Date: 20091009
  Serious: No
  Sender: FDA-Public Use
  Company Number: US-ASTRAZENECA-2009UW09151

PATIENT
  Sex: Male
  Weight: 93 kg

DRUGS (1)
  1. SYMBICORT [Suspect]
     Indication: CHRONIC OBSTRUCTIVE PULMONARY DISEASE
     Dosage: 160/4.5 UG,
     Route: 055

REACTIONS (3)
  - MUSCLE SPASMS [None]
  - MYALGIA [None]
  - POLLAKIURIA [None]
